FAERS Safety Report 23067299 (Version 1)
Quarter: 2023Q4

REPORT INFORMATION
  Report Type: Spontaneous
  Country: US (occurrence: US)
  Receive Date: 20231016
  Receipt Date: 20231016
  Transmission Date: 20240110
  Serious: Yes (Other)
  Sender: FDA-Public Use
  Company Number: US-BRISTOL-MYERS SQUIBB COMPANY-2023-144922

PATIENT
  Age: 68 Year
  Sex: Female

DRUGS (1)
  1. LENALIDOMIDE [Suspect]
     Active Substance: LENALIDOMIDE
     Indication: Plasma cell myeloma in remission
     Dosage: TAKE 1 CAPSULE (5MG TOTAL) BY MOUTH EVERY DAY FOR 21 DAYS THEN 7 DAYS OFF IN A 28 DAY CYCLE
     Route: 048
     Dates: start: 20221024

REACTIONS (2)
  - Cellulitis [Recovering/Resolving]
  - Animal bite [Recovering/Resolving]
